FAERS Safety Report 11078269 (Version 1)
Quarter: 2015Q2

REPORT INFORMATION
  Report Type: Spontaneous
  Country: US (occurrence: None)
  Receive Date: 20150429
  Receipt Date: 20150429
  Transmission Date: 20150821
  Serious: Yes (Life-Threatening)
  Sender: FDA-Public Use
  Company Number: None

PATIENT
  Age: 62 Year
  Sex: Female
  Weight: 63.5 kg

DRUGS (11)
  1. LISINOPRIL. [Concomitant]
     Active Substance: LISINOPRIL
  2. RIBIVARIN [Concomitant]
  3. CALCIUM [Concomitant]
     Active Substance: CALCIUM
  4. MULTI VITAMIN [Concomitant]
     Active Substance: VITAMINS
  5. TACROLIMUS. [Suspect]
     Active Substance: TACROLIMUS
     Indication: PROPHYLAXIS AGAINST TRANSPLANT REJECTION
     Dosage: 1 PILL
     Route: 048
     Dates: start: 20150320, end: 20150415
  6. TACROLIMUS. [Suspect]
     Active Substance: TACROLIMUS
     Dosage: 1 PILL
     Route: 048
     Dates: start: 20150320, end: 20150415
  7. IMURAN [Concomitant]
     Active Substance: AZATHIOPRINE
  8. BABY ASPIRIN [Concomitant]
     Active Substance: ASPIRIN
  9. OMEPRAZOLE. [Concomitant]
     Active Substance: OMEPRAZOLE
  10. HARVONI [Concomitant]
     Active Substance: LEDIPASVIR\SOFOSBUVIR
  11. PROGRAF [Concomitant]
     Active Substance: TACROLIMUS\TACROLIMUS ANHYDROUS

REACTIONS (3)
  - Immunosuppressant drug level decreased [None]
  - Product substitution issue [None]
  - Product quality issue [None]

NARRATIVE: CASE EVENT DATE: 20150310
